FAERS Safety Report 7988991-3 (Version None)
Quarter: 2011Q4

REPORT INFORMATION
  Report Type: 
  Country: None (occurrence: None)
  Receive Date: 20111219
  Receipt Date: 20111214
  Transmission Date: 20120403
  Serious: Yes (Death, Life-Threatening, Hospitalization)
  Sender: FDA-Public Use
  Company Number: PHHY2010US86412

PATIENT
  Sex: Female

DRUGS (3)
  1. TOBI [Suspect]
     Indication: BRONCHIECTASIS
  2. TOBI [Suspect]
     Indication: OBSTRUCTIVE AIRWAYS DISORDER
     Dosage: 300 MG, BID
     Dates: start: 20101119
  3. TOBI [Suspect]
     Indication: BRONCHITIS CHRONIC

REACTIONS (2)
  - RESPIRATORY ARREST [None]
  - DEATH [None]
